FAERS Safety Report 22057630 (Version 2)
Quarter: 2024Q3

REPORT INFORMATION
  Report Type: Spontaneous
  Country: US (occurrence: US)
  Receive Date: 20230303
  Receipt Date: 20240819
  Transmission Date: 20241017
  Serious: Yes (Death)
  Sender: RECORDATI
  Company Number: US-RECORDATI-2023001198

PATIENT

DRUGS (18)
  1. ISTURISA [Suspect]
     Active Substance: OSILODROSTAT PHOSPHATE
     Indication: Cushing^s syndrome
     Dosage: 3 MILLIGRAM, BID
     Route: 048
     Dates: start: 20220315
  2. FERROUS SULFATE [Concomitant]
     Active Substance: FERROUS SULFATE
     Indication: Product used for unknown indication
     Dosage: 325 MILLIGRAM
  3. DOCUSATE [Concomitant]
     Active Substance: DOCUSATE
     Indication: Product used for unknown indication
     Dosage: 250 MILLIGRAM, QD
  4. LACTULOSE [Concomitant]
     Active Substance: LACTULOSE
     Indication: Product used for unknown indication
     Route: 048
  5. PANTOPRAZOLE [Concomitant]
     Active Substance: PANTOPRAZOLE
     Indication: Product used for unknown indication
     Dosage: 40 MILLIGRAM
  6. FUROSEMIDE [Concomitant]
     Active Substance: FUROSEMIDE
     Indication: Product used for unknown indication
     Dosage: 20 MILLIGRAM
  7. VITAMIN D3 [Concomitant]
     Active Substance: CHOLECALCIFEROL
     Indication: Product used for unknown indication
     Dosage: 50 MICROGRAM
  8. ZOFRAN [Concomitant]
     Active Substance: ONDANSETRON HYDROCHLORIDE
     Indication: Product used for unknown indication
     Dosage: 8 MILLIGRAM
  9. COMPAZINE [Concomitant]
     Active Substance: PROCHLORPERAZINE MALEATE
     Indication: Product used for unknown indication
     Dosage: 10 MILLIGRAM
  10. METOPROLOL [Concomitant]
     Active Substance: METOPROLOL
     Indication: Product used for unknown indication
     Dosage: 25 MILLIGRAM
  11. OSCAL [CALCITRIOL] [Concomitant]
     Indication: Product used for unknown indication
     Dosage: 200 (UNSPECIFIED UNIT)
  12. LOSARTAN [Concomitant]
     Active Substance: LOSARTAN\LOSARTAN POTASSIUM
     Indication: Product used for unknown indication
     Dosage: 50 MILLIGRAM
  13. LANTUS [Concomitant]
     Active Substance: INSULIN GLARGINE
     Indication: Product used for unknown indication
  14. INSULIN LISPRO [Concomitant]
     Active Substance: INSULIN LISPRO
     Indication: Product used for unknown indication
     Dosage: SLIDING SCALE, PRN
     Route: 058
  15. ZYRTEC [Concomitant]
     Active Substance: CETIRIZINE HYDROCHLORIDE
     Indication: Product used for unknown indication
     Dosage: 10 (UNSPECIFIED UNIT)
  16. BAQSIMI [Concomitant]
     Active Substance: GLUCAGON
     Indication: Product used for unknown indication
     Route: 045
  17. POTASSIUM [Concomitant]
     Active Substance: POTASSIUM
     Indication: Product used for unknown indication
     Dosage: 10 MILLIGRAM
  18. ELIQUIS [Concomitant]
     Active Substance: APIXABAN
     Indication: Product used for unknown indication
     Dosage: 5 MILLIGRAM

REACTIONS (1)
  - Gastrointestinal haemorrhage [Fatal]
